FAERS Safety Report 22227322 (Version 1)
Quarter: 2023Q2

REPORT INFORMATION
  Report Type: Spontaneous
  Country: FR (occurrence: FR)
  Receive Date: 20230419
  Receipt Date: 20230419
  Transmission Date: 20230721
  Serious: Yes (Hospitalization)
  Sender: FDA-Public Use
  Company Number: None

PATIENT
  Age: 75 Year
  Sex: Male
  Weight: 67 kg

DRUGS (22)
  1. JARDIANCE [Suspect]
     Active Substance: EMPAGLIFLOZIN
     Indication: Cardiac failure
     Route: 048
     Dates: start: 20230111, end: 20230120
  2. ATORVASTATIN CALCIUM [Suspect]
     Active Substance: ATORVASTATIN CALCIUM
     Indication: Hypercholesterolaemia
     Route: 048
     Dates: start: 20230111
  3. ALLOPURINOL ARROW 100 mg,tablet [Concomitant]
     Indication: Product used for unknown indication
  4. PERINDOPRIL [Concomitant]
     Active Substance: PERINDOPRIL
     Indication: Hypertension
     Route: 048
  5. JANUVIA 100 mg, film coated tablet [Concomitant]
     Indication: Product used for unknown indication
     Route: 048
  6. HYDREA [Concomitant]
     Active Substance: HYDROXYUREA
     Indication: Product used for unknown indication
     Route: 048
  7. PRISTINAMYCIN [Concomitant]
     Active Substance: PRISTINAMYCIN
     Indication: Product used for unknown indication
     Route: 048
     Dates: start: 20230126, end: 20230203
  8. BETAHISTINE ACCORD 8 mg, tablet [Concomitant]
     Indication: Product used for unknown indication
     Route: 048
  9. LERCANIDIPINE ARROW 10 mg, scored film-coated tablet [Concomitant]
     Indication: Hypertension
     Route: 048
  10. NOVORAPID [Concomitant]
     Active Substance: INSULIN ASPART
     Indication: Type 2 diabetes mellitus
     Route: 058
     Dates: start: 20230204
  11. LASILIX SPECIAL 500 mg, scored tablet [Concomitant]
     Indication: Product used for unknown indication
     Dosage: SCORED TABLET.
     Route: 048
  12. PIRIBEDIL [Concomitant]
     Active Substance: PIRIBEDIL
     Indication: Product used for unknown indication
     Dosage: 1 CP/D
     Route: 048
  13. CLOXACILLIN [Concomitant]
     Active Substance: CLOXACILLIN
     Indication: Product used for unknown indication
     Route: 042
     Dates: start: 20230203, end: 20230206
  14. KARDEGIC [Concomitant]
     Active Substance: ASPIRIN DL-LYSINE
     Indication: Product used for unknown indication
     Dosage: POWDER FOR DRINKABLE SOLUTION IN SACHET
     Route: 048
  15. ABASAGLAR 100 unit?s/ml, injectable solution in cartridge [Concomitant]
     Indication: Type 2 diabetes mellitus
     Dosage: INJECTABLE SOLUTION IN CARTRIDGE
     Route: 058
     Dates: start: 20230204
  16. XATRAL LP 10 mg, sustained-release tablet [Concomitant]
     Indication: Product used for unknown indication
     Dosage: SUSTAIN-RELEASE TABLET
     Route: 048
  17. DOLIPRANE 500 mg, capsule [Concomitant]
     Indication: Pain
     Route: 048
  18. ACEBUTOLOL ALMUS 200 mg, film-coated tablet [Concomitant]
     Indication: Cardiac failure
     Route: 048
  19. CEFAZOLINE PANPHARMA 1 g/3 ml, powder and solution for parenteral use [Concomitant]
     Indication: Product used for unknown indication
     Dosage: POWDER AND SOLUTION
     Route: 041
     Dates: start: 20230206, end: 20230209
  20. METFORMINE ALMUS 850 mg, film-coated tablet [Concomitant]
     Indication: Type 2 diabetes mellitus
     Route: 048
  21. URAPIDIL STRAGEN LP 30 mg, sustained-release capsule [Concomitant]
     Indication: Product used for unknown indication
     Dosage: SUSTAINED-RELEASE CAPSULE
     Route: 048
  22. OROZAMUDOL 50 mg, orodispersible tablet [Concomitant]
     Indication: Pain
     Route: 048
     Dates: start: 20230204

REACTIONS (1)
  - Subcutaneous abscess [Recovering/Resolving]

NARRATIVE: CASE EVENT DATE: 20230120
